FAERS Safety Report 15663628 (Version 1)
Quarter: 2018Q4

REPORT INFORMATION
  Report Type: Spontaneous
  Country: US (occurrence: US)
  Receive Date: 20181128
  Receipt Date: 20181128
  Transmission Date: 20190205
  Serious: No
  Sender: FDA-Public Use
  Company Number: US-AUROBINDO-AUR-APL-2018-031427

PATIENT
  Age: 68 Year
  Sex: Female
  Weight: 61 kg

DRUGS (4)
  1. ONDANSETRON [Concomitant]
     Active Substance: ONDANSETRON
     Dosage: UNK
  2. TRAMADOL. [Concomitant]
     Active Substance: TRAMADOL
     Indication: PRODUCT USED FOR UNKNOWN INDICATION
     Dosage: UNK
     Route: 065
  3. FENTANYL. [Concomitant]
     Active Substance: FENTANYL
     Indication: PRODUCT USED FOR UNKNOWN INDICATION
     Dosage: FENTANYL 25 MCQ/HOUR
     Route: 065
  4. GABAPENTIN TABLETS USP 600MG [Suspect]
     Active Substance: GABAPENTIN
     Indication: NERVE INJURY
     Dosage: 1800 MILLIGRAM, ONCE A DAYFOR FOUR MONTHS
     Route: 048

REACTIONS (6)
  - Dysphonia [Recovering/Resolving]
  - Goitre [Recovering/Resolving]
  - Anxiety [Recovering/Resolving]
  - Lymphadenopathy [Recovering/Resolving]
  - Vision blurred [Recovering/Resolving]
  - Pain [Recovering/Resolving]
